FAERS Safety Report 11405739 (Version 1)
Quarter: 2015Q3

REPORT INFORMATION
  Report Type: Spontaneous
  Country: US (occurrence: US)
  Receive Date: 20150821
  Receipt Date: 20150821
  Transmission Date: 20151125
  Serious: Yes (Hospitalization, Other)
  Sender: FDA-Public Use
  Company Number: US-GLAXOSMITHKLINE-A0874025A

PATIENT
  Sex: Male

DRUGS (27)
  1. LISINOPRIL. [Concomitant]
     Active Substance: LISINOPRIL
  2. SIMVASTATIN. [Concomitant]
     Active Substance: SIMVASTATIN
  3. FUROSEMIDE. [Concomitant]
     Active Substance: FUROSEMIDE
  4. ADVAIR DISKUS [Suspect]
     Active Substance: FLUTICASONE PROPIONATE\SALMETEROL XINAFOATE
     Indication: EMPHYSEMA
  5. METFORMIN [Concomitant]
     Active Substance: METFORMIN HYDROCHLORIDE
  6. VITAMIN D3 [Concomitant]
     Active Substance: CHOLECALCIFEROL
  7. POTASSIUM CHLORIDE. [Concomitant]
     Active Substance: POTASSIUM CHLORIDE
  8. NOVOLOG [Concomitant]
     Active Substance: INSULIN ASPART
  9. ADVAIR HFA [Suspect]
     Active Substance: FLUTICASONE PROPIONATE\SALMETEROL XINAFOATE
     Indication: CHRONIC OBSTRUCTIVE PULMONARY DISEASE
     Dosage: 1 PUFF(S), UNK
     Route: 055
     Dates: start: 2006
  10. PREDNISONE. [Concomitant]
     Active Substance: PREDNISONE
  11. FINASTERIDE. [Concomitant]
     Active Substance: FINASTERIDE
  12. BAYER ASPIRIN [Concomitant]
     Active Substance: ASPIRIN
  13. ADVAIR DISKUS [Suspect]
     Active Substance: FLUTICASONE PROPIONATE\SALMETEROL XINAFOATE
     Indication: CHRONIC OBSTRUCTIVE PULMONARY DISEASE
     Dosage: 1 PUFF(S), BID
     Route: 055
  14. VITAMIN C [Concomitant]
     Active Substance: ASCORBIC ACID
  15. AZITHROMYCIN [Concomitant]
     Active Substance: AZITHROMYCIN ANHYDROUS
  16. ADVAIR DISKUS [Suspect]
     Active Substance: FLUTICASONE PROPIONATE\SALMETEROL XINAFOATE
     Indication: ASTHMA
  17. LANTUS [Concomitant]
     Active Substance: INSULIN GLARGINE
  18. LEVOTHYROXINE. [Concomitant]
     Active Substance: LEVOTHYROXINE
  19. HYDROCHLOROTHIAZIDE. [Concomitant]
     Active Substance: HYDROCHLOROTHIAZIDE
  20. ATORVASTATIN [Concomitant]
     Active Substance: ATORVASTATIN
  21. OMEPRAZOLE. [Concomitant]
     Active Substance: OMEPRAZOLE
  22. GLYBURIDE. [Concomitant]
     Active Substance: GLYBURIDE
  23. IRON [Concomitant]
     Active Substance: IRON
  24. PROVENTIL [Concomitant]
     Active Substance: ALBUTEROL
  25. SPIRIVA [Concomitant]
     Active Substance: TIOTROPIUM BROMIDE MONOHYDRATE
  26. ASPIRIN. [Concomitant]
     Active Substance: ASPIRIN
  27. VITAMIN B12 [Concomitant]
     Active Substance: CYANOCOBALAMIN

REACTIONS (11)
  - Pseudomonas infection [Recovered/Resolved]
  - Dyspnoea [Recovered/Resolved]
  - Emphysema [Recovered/Resolved]
  - Blood potassium decreased [Unknown]
  - Hypotension [Unknown]
  - Increased upper airway secretion [Unknown]
  - Cataract [Unknown]
  - Heart rate increased [Unknown]
  - Productive cough [Recovered/Resolved]
  - Diagnostic procedure [Unknown]
  - Pneumonia [Recovered/Resolved]
